FAERS Safety Report 8876005 (Version 1)
Quarter: 2012Q4

REPORT INFORMATION
  Report Type: 
  Country: FR (occurrence: FR)
  Receive Date: 20121030
  Receipt Date: 20121030
  Transmission Date: 20130627
  Serious: Yes (Congenital Anomaly)
  Sender: FDA-Public Use
  Company Number: FR-SHIRE-ALL1-2012-05245

PATIENT
  Age: 4 Month
  Sex: Male

DRUGS (2)
  1. XAGRID [Suspect]
     Indication: PRODUCT USED FOR UNKNOWN INDICATION
     Dosage: 0.5 mg, Unknown
     Route: 064
     Dates: start: 2011
  2. LOVENOX [Suspect]
     Indication: PRODUCT USED FOR UNKNOWN INDICATION
     Dosage: UNK, Unknown
     Route: 064
     Dates: start: 2011

REACTIONS (2)
  - Deafness bilateral [Unknown]
  - Exposure during pregnancy [Unknown]
